FAERS Safety Report 6998910-4 (Version None)
Quarter: 2010Q3

REPORT INFORMATION
  Report Type: 
  Country: None (occurrence: None)
  Receive Date: 20100920
  Receipt Date: 20100517
  Transmission Date: 20110219
  Serious: Yes (Hospitalization)
  Sender: FDA-Public Use
  Company Number: US-ASTRAZENECA-2007UW11927

PATIENT
  Sex: Female

DRUGS (7)
  1. SEROQUEL [Suspect]
     Route: 048
     Dates: start: 20030101
  2. HYDROCHLOROTHIAZIDE [Concomitant]
     Route: 048
     Dates: start: 20030125
  3. PROZAC [Concomitant]
     Route: 048
     Dates: start: 20030125
  4. ZESTRIL [Concomitant]
     Route: 048
     Dates: start: 20030125
  5. ZYPREXA [Concomitant]
     Dosage: 5 MG TO 20 MG
     Route: 048
     Dates: start: 20030125
  6. SIMVASTATIN [Concomitant]
     Route: 048
     Dates: start: 20080919
  7. LORAZEPAM [Concomitant]
     Route: 048
     Dates: start: 20080919

REACTIONS (2)
  - DIABETES MELLITUS [None]
  - TYPE 2 DIABETES MELLITUS [None]
